FAERS Safety Report 20955716 (Version 2)
Quarter: 2022Q2

REPORT INFORMATION
  Report Type: Spontaneous
  Country: CA (occurrence: FR)
  Receive Date: 20220614
  Receipt Date: 20220621
  Transmission Date: 20220721
  Serious: Yes (Other)
  Sender: FDA-Public Use
  Company Number: CA-MACLEODS PHARMACEUTICALS US LTD-MAC2022036020

PATIENT

DRUGS (2)
  1. LIDOCAINE [Suspect]
     Active Substance: LIDOCAINE
     Indication: Local anaesthesia
     Dosage: 20 G/ML (WITH EPINEPHRINE)
     Route: 008
  2. LIDOCAINE [Suspect]
     Active Substance: LIDOCAINE
     Dosage: 10 G/ML
     Route: 008

REACTIONS (3)
  - Embolia cutis medicamentosa [Recovering/Resolving]
  - Injection site reaction [Recovering/Resolving]
  - Maternal exposure during pregnancy [Unknown]
